FAERS Safety Report 8455249-8 (Version None)
Quarter: 2012Q2

REPORT INFORMATION
  Report Type: 
  Country: None (occurrence: None)
  Receive Date: 20120621
  Receipt Date: 20120611
  Transmission Date: 20120825
  Serious: Yes (Other)
  Sender: FDA-Public Use
  Company Number: BR-SANOFI-AVENTIS-2011SA019438

PATIENT
  Sex: Female
  Weight: 62 kg

DRUGS (3)
  1. PROGESTERONE [Concomitant]
     Dates: start: 20110301, end: 20110425
  2. DACTIL OB [Suspect]
     Indication: PROPHYLAXIS
     Route: 048
     Dates: start: 20110301
  3. ENOXAPARIN SODIUM [Suspect]
     Indication: ANTIPHOSPHOLIPID SYNDROME
     Route: 058
     Dates: start: 20110301, end: 20120425

REACTIONS (2)
  - MATERNAL EXPOSURE DURING PREGNANCY [None]
  - ABORTION SPONTANEOUS [None]
